FAERS Safety Report 4824727-2 (Version None)
Quarter: 2005Q4

REPORT INFORMATION
  Report Type: 
  Country: None (occurrence: None)
  Receive Date: 20051014
  Receipt Date: 20050802
  Transmission Date: 20060501
  Serious: Yes (Hospitalization)
  Sender: FDA-Public Use
  Company Number: 2005SP002200

PATIENT
  Age: 34 Year
  Sex: Female
  Weight: 48.9885 kg

DRUGS (3)
  1. LUNESTA [Suspect]
     Indication: INSOMNIA
     Dosage: 4 MG; 1X; ORAL
     Route: 048
     Dates: start: 20050731, end: 20050731
  2. SKELAXIN [Suspect]
     Dates: start: 20050101
  3. ALDACTONE [Suspect]
     Dates: start: 20050101

REACTIONS (2)
  - DYSPNOEA [None]
  - TREMOR [None]
